FAERS Safety Report 10420015 (Version 2)
Quarter: 2014Q3

REPORT INFORMATION
  Report Type: Spontaneous
  Country: IT (occurrence: IT)
  Receive Date: 20140829
  Receipt Date: 20140905
  Transmission Date: 20150326
  Serious: Yes (Life-Threatening)
  Sender: FDA-Public Use
  Company Number: IT-ASTRAZENECA-2014SE64746

PATIENT
  Age: 16152 Day
  Sex: Female

DRUGS (2)
  1. SEROQUEL [Suspect]
     Active Substance: QUETIAPINE FUMARATE
     Indication: DRUG ABUSE
     Dosage: 300 MG, 4 DOSAGE FORMS TOTAL
     Route: 048
     Dates: start: 20140822, end: 20140822
  2. ANTI-DEPRESSANTS [Suspect]
     Active Substance: UNSPECIFIED INGREDIENT

REACTIONS (2)
  - Coma [Recovering/Resolving]
  - Drug abuse [Recovering/Resolving]

NARRATIVE: CASE EVENT DATE: 20140822
